FAERS Safety Report 5496226-9 (Version None)
Quarter: 2007Q4

REPORT INFORMATION
  Report Type: 
  Country: None (occurrence: None)
  Receive Date: 20071025
  Receipt Date: 20070313
  Transmission Date: 20080405
  Serious: No
  Sender: FDA-Public Use
  Company Number: A0643089A

PATIENT
  Age: 66 Year
  Sex: Female

DRUGS (6)
  1. ADVAIR DISKUS 100/50 [Suspect]
     Indication: ASTHMA
     Route: 055
     Dates: start: 20020101
  2. ZOCOR [Concomitant]
  3. VITAMIN E [Concomitant]
  4. FOSAMAX [Concomitant]
  5. ASCORBIC ACID [Concomitant]
  6. FISH OIL [Concomitant]

REACTIONS (4)
  - BONE DENSITY DECREASED [None]
  - PHARYNGOLARYNGEAL PAIN [None]
  - PRODUCTIVE COUGH [None]
  - RHINORRHOEA [None]
